FAERS Safety Report 14186854 (Version 1)
Quarter: 2017Q4

REPORT INFORMATION
  Report Type: Spontaneous
  Country: US (occurrence: US)
  Receive Date: 20171114
  Receipt Date: 20171114
  Transmission Date: 20180321
  Serious: Yes (Hospitalization)
  Sender: FDA-Public Use
  Company Number: US-JNJFOC-20171112424

PATIENT
  Sex: Female

DRUGS (1)
  1. XARELTO [Suspect]
     Active Substance: RIVAROXABAN
     Indication: PRODUCT USED FOR UNKNOWN INDICATION
     Route: 048
     Dates: start: 20140601, end: 20141001

REACTIONS (5)
  - Pneumonitis [Unknown]
  - Pneumothorax [Unknown]
  - Pericarditis [Unknown]
  - Pericardial effusion [Unknown]
  - Pulmonary oedema [Unknown]
